FAERS Safety Report 7554536-5 (Version None)
Quarter: 2011Q2

REPORT INFORMATION
  Report Type: 
  Country: None (occurrence: None)
  Receive Date: 20110617
  Receipt Date: 20110614
  Transmission Date: 20111010
  Serious: Yes (Other)
  Sender: FDA-Public Use
  Company Number: D0071715A

PATIENT
  Sex: Female

DRUGS (1)
  1. FLUTICASONE PROPIONATE [Suspect]
     Indication: ASTHMA
     Route: 055

REACTIONS (8)
  - SKIN DISCOLOURATION [None]
  - RAYNAUD'S PHENOMENON [None]
  - ARTHROPATHY [None]
  - POLYARTHRITIS [None]
  - LUMBAR PUNCTURE [None]
  - HAEMOPTYSIS [None]
  - ALLERGIC GRANULOMATOUS ANGIITIS [None]
  - VASCULITIS [None]
